FAERS Safety Report 23538095 (Version 1)
Quarter: 2024Q1

REPORT INFORMATION
  Report Type: Spontaneous
  Country: FR (occurrence: FR)
  Receive Date: 20240219
  Receipt Date: 20240219
  Transmission Date: 20240410
  Serious: Yes (Hospitalization, Other)
  Sender: FDA-Public Use
  Company Number: None

PATIENT
  Age: 64 Year
  Sex: Female
  Weight: 85 kg

DRUGS (21)
  1. GANCICLOVIR [Suspect]
     Active Substance: GANCICLOVIR
     Indication: Cytomegalovirus infection
     Dosage: DAILY DOSE: 85 MILLIGRAM
     Route: 042
     Dates: start: 20240103, end: 20240116
  2. VALGANCICLOVIR [Suspect]
     Active Substance: VALGANCICLOVIR
     Dates: end: 20231107
  3. OLANZAPINE [Suspect]
     Active Substance: OLANZAPINE
     Indication: Psychotic disorder
     Dates: start: 20240107
  4. AMOXICILLIN [Suspect]
     Active Substance: AMOXICILLIN
     Indication: Renal transplant
     Route: 048
     Dates: start: 20240104, end: 20240111
  5. ENVARSUS XR [Suspect]
     Active Substance: TACROLIMUS
     Indication: Renal transplant
     Dates: start: 20240108
  6. ENVARSUS XR [Suspect]
     Active Substance: TACROLIMUS
     Indication: Renal transplant
     Dates: start: 20240110, end: 20240112
  7. ENVARSUS XR [Suspect]
     Active Substance: TACROLIMUS
     Indication: Renal transplant
     Route: 048
     Dates: end: 20240112
  8. OXAZEPAM [Concomitant]
     Active Substance: OXAZEPAM
     Dates: end: 20240107
  9. CELLCEPT [Concomitant]
     Active Substance: MYCOPHENOLATE MOFETIL
  10. BACTRIM [Concomitant]
     Active Substance: SULFAMETHOXAZOLE\TRIMETHOPRIM
  11. FOLIC ACID [Concomitant]
     Active Substance: FOLIC ACID
  12. AMIODARONE [Concomitant]
     Active Substance: AMIODARONE
  13. BISOPROLOL [Concomitant]
     Active Substance: BISOPROLOL\BISOPROLOL FUMARATE
  14. FUROSEMIDE [Concomitant]
     Active Substance: FUROSEMIDE
  15. KARDEGIC [Concomitant]
     Active Substance: ASPIRIN DL-LYSINE
  16. OXAZEPAM [Concomitant]
     Active Substance: OXAZEPAM
  17. CINACALCET [Concomitant]
     Active Substance: CINACALCET
  18. SOLU-MEDROL [Concomitant]
     Active Substance: METHYLPREDNISOLONE SODIUM SUCCINATE
     Dosage: 3 BOLUSES
     Dates: start: 20231220, end: 20231222
  19. TACROLIMUS [Concomitant]
     Active Substance: TACROLIMUS
     Dates: start: 20240108
  20. TACROLIMUS [Concomitant]
     Active Substance: TACROLIMUS
     Dates: start: 20240110, end: 20240112
  21. MEROPENEM [Concomitant]
     Active Substance: MEROPENEM

REACTIONS (3)
  - Encephalopathy [Recovered/Resolved]
  - Renal failure [Unknown]
  - Overdose [Unknown]

NARRATIVE: CASE EVENT DATE: 20240107
